FAERS Safety Report 23101617 (Version 2)
Quarter: 2023Q4

REPORT INFORMATION
  Report Type: Spontaneous
  Country: US (occurrence: None)
  Receive Date: 20231025
  Receipt Date: 20231124
  Transmission Date: 20240109
  Serious: No
  Sender: FDA-Public Use
  Company Number: 2023A236982

PATIENT

DRUGS (6)
  1. TEZSPIRE [Suspect]
     Active Substance: TEZEPELUMAB-EKKO
  2. TEZSPIRE [Concomitant]
     Active Substance: TEZEPELUMAB-EKKO
  3. TEZSPIRE [Concomitant]
     Active Substance: TEZEPELUMAB-EKKO
  4. TEZSPIRE [Concomitant]
     Active Substance: TEZEPELUMAB-EKKO
  5. TEZSPIRE [Concomitant]
     Active Substance: TEZEPELUMAB-EKKO
  6. TEZSPIRE [Concomitant]
     Active Substance: TEZEPELUMAB-EKKO

REACTIONS (1)
  - Dyspnoea [Unknown]
